FAERS Safety Report 5009731-6 (Version None)
Quarter: 2006Q2

REPORT INFORMATION
  Report Type: 
  Country: None (occurrence: None)
  Receive Date: 20060522
  Receipt Date: 20060515
  Transmission Date: 20061013
  Serious: Yes (Hospitalization, Other)
  Sender: FDA-Public Use
  Company Number: 2006063774

PATIENT
  Age: 52 Year
  Sex: Female

DRUGS (1)
  1. LIPITOR [Suspect]
     Indication: HYPERCHOLESTEROLAEMIA
     Dosage: 5-10 MG (1 IN 1 D), ORAL
     Route: 048
     Dates: start: 20021101, end: 20060501

REACTIONS (4)
  - BLOOD GLUCOSE INCREASED [None]
  - CACHEXIA [None]
  - GLYCOSYLATED HAEMOGLOBIN INCREASED [None]
  - HYPERTHYROIDISM [None]
